FAERS Safety Report 4323287-2 (Version None)
Quarter: 2004Q1

REPORT INFORMATION
  Report Type: 
  Country: None (occurrence: None)
  Receive Date: 20040322
  Receipt Date: 20040303
  Transmission Date: 20041129
  Serious: Yes (Other)
  Sender: FDA-Public Use
  Company Number: 2004-03-0203

PATIENT
  Age: 71 Year
  Sex: Female

DRUGS (2)
  1. BUFFERIN [Suspect]
     Indication: ANGINA PECTORIS
     Dosage: 81 MG; ORAL
     Route: 048
     Dates: end: 20040221
  2. CLARITIN [Suspect]
     Indication: PRURITUS
     Dosage: 10 MG; ORAL
     Route: 048
     Dates: start: 20040203, end: 20040209

REACTIONS (3)
  - ANAEMIA [None]
  - CONDITION AGGRAVATED [None]
  - HAEMORRHAGE SUBCUTANEOUS [None]
